FAERS Safety Report 12468457 (Version 1)
Quarter: 2016Q2

REPORT INFORMATION
  Report Type: Report from Study
  Country: DE (occurrence: DE)
  Receive Date: 20160615
  Receipt Date: 20160615
  Transmission Date: 20160815
  Serious: Yes (Hospitalization, Other)
  Sender: FDA-Public Use
  Company Number: DE-OTSUKA-2016_006895

PATIENT
  Age: 52 Year
  Sex: Male
  Weight: 85 kg

DRUGS (30)
  1. BLINDED *PLACEBO [Suspect]
     Active Substance: INVESTIGATIONAL PRODUCT
     Dosage: 0 MG, QD (IN EVENING)
     Route: 048
     Dates: start: 20151109, end: 20151117
  2. BLINDED *PLACEBO [Suspect]
     Active Substance: INVESTIGATIONAL PRODUCT
     Dosage: 15 MG, QD (IN EVENING) (TOLVAPTAN)
     Route: 048
     Dates: start: 20151117, end: 20151121
  3. BLINDED TOLVAPTAN [Suspect]
     Active Substance: TOLVAPTAN
     Dosage: 30 MG, QD (IN EVENING) (TOLVAPTAN)
     Route: 048
     Dates: start: 20151126, end: 20151129
  4. BLINDED TOLVAPTAN [Suspect]
     Active Substance: TOLVAPTAN
     Dosage: 90 MG, QD (IN MORNING) (TOLVAPTAN RUN-IN)
     Route: 048
     Dates: start: 20151201, end: 20151222
  5. AMLODIPIN [Concomitant]
     Active Substance: AMLODIPINE BESYLATE
     Indication: HYPERTENSION
     Dosage: 5 MG, QD
     Route: 048
     Dates: start: 2009
  6. BLINDED *PLACEBO [Suspect]
     Active Substance: INVESTIGATIONAL PRODUCT
     Dosage: 30 MG, QD (IN EVENING) (TOLVAPTAN)
     Route: 048
     Dates: start: 20151130, end: 20151201
  7. BLINDED TOLVAPTAN [Suspect]
     Active Substance: TOLVAPTAN
     Dosage: 0 MG, QD (IN MORNING)
     Route: 048
     Dates: start: 20151109, end: 20151117
  8. BLINDED TOLVAPTAN [Suspect]
     Active Substance: TOLVAPTAN
     Dosage: 45 MG, QD (IN MORNING) (TOLVAPTAN)
     Route: 048
     Dates: start: 20151122, end: 20151125
  9. BLINDED *PLACEBO [Suspect]
     Active Substance: INVESTIGATIONAL PRODUCT
     Dosage: 15 MG, QD (IN EVENING) (TOLVAPTAN)
     Route: 048
     Dates: start: 20151122, end: 20151125
  10. BLINDED TOLVAPTAN [Suspect]
     Active Substance: TOLVAPTAN
     Dosage: 60 MG, QD (IN MORNING) (TOLVAPTAN)
     Route: 048
     Dates: start: 20151126, end: 20151129
  11. BLINDED TOLVAPTAN [Suspect]
     Active Substance: TOLVAPTAN
     Indication: CONGENITAL CYSTIC KIDNEY DISEASE
     Dosage: 90 MG, QD (IN MORNING)
     Route: 048
     Dates: start: 20151223, end: 20160329
  12. BLINDED TOLVAPTAN [Suspect]
     Active Substance: TOLVAPTAN
     Dosage: 30 MG, QD (IN EVENING)
     Route: 048
     Dates: start: 20151130, end: 20160329
  13. BLINDED *PLACEBO [Suspect]
     Active Substance: INVESTIGATIONAL PRODUCT
     Dosage: 30 MG, QD (IN MORNING) (TOLVAPTAN)
     Route: 048
     Dates: start: 20151117, end: 20151121
  14. VOCADO [Concomitant]
     Active Substance: AMLODIPINE BESYLATE\OLMESARTAN MEDOXOMIL
     Indication: HYPERTENSION
     Dosage: 40 MG, QD (ONE IN MORNING)
     Route: 048
     Dates: start: 2009
  15. BLINDED *PLACEBO [Suspect]
     Active Substance: INVESTIGATIONAL PRODUCT
     Indication: CONGENITAL CYSTIC KIDNEY DISEASE
     Dosage: 90 MG, QD (IN MORNING)
     Route: 048
     Dates: start: 20151223, end: 20160329
  16. BLINDED TOLVAPTAN [Suspect]
     Active Substance: TOLVAPTAN
     Dosage: 15 MG, QD (IN EVENING) (TOLVAPTAN)
     Route: 048
     Dates: start: 20151117, end: 20151121
  17. BLINDED *PLACEBO [Suspect]
     Active Substance: INVESTIGATIONAL PRODUCT
     Dosage: 45 MG, QD (IN MORNING) (TOLVAPTAN)
     Route: 048
     Dates: start: 20151122, end: 20151125
  18. BLINDED TOLVAPTAN [Suspect]
     Active Substance: TOLVAPTAN
     Dosage: 15 MG, QD (IN EVENING) (TOLVAPTAN)
     Route: 048
     Dates: start: 20151122, end: 20151125
  19. BLINDED *PLACEBO [Suspect]
     Active Substance: INVESTIGATIONAL PRODUCT
     Dosage: 60 MG, QD (IN MORNING) (TOLVAPTAN)
     Route: 048
     Dates: start: 20151126, end: 20151129
  20. BLINDED TOLVAPTAN [Suspect]
     Active Substance: TOLVAPTAN
     Dosage: 90 MG, QD (IN MORNING) (TOLVAPTAN)
     Route: 048
     Dates: start: 20151130, end: 20151201
  21. BLINDED *PLACEBO [Suspect]
     Active Substance: INVESTIGATIONAL PRODUCT
     Dosage: 30 MG, QD (IN EVENING) (TOLVAPTAN RUN-IN)
     Route: 048
     Dates: start: 20151201, end: 20151222
  22. BLINDED TOLVAPTAN [Suspect]
     Active Substance: TOLVAPTAN
     Dosage: 30 MG, QD (IN EVENING) (TOLVAPTAN)
     Route: 048
     Dates: start: 20151130, end: 20151201
  23. BLINDED *PLACEBO [Suspect]
     Active Substance: INVESTIGATIONAL PRODUCT
     Dosage: 0 MG, QD (IN MORNING)
     Route: 048
     Dates: start: 20151109, end: 20151117
  24. BLINDED TOLVAPTAN [Suspect]
     Active Substance: TOLVAPTAN
     Dosage: 0 MG, QD (IN EVENING)
     Route: 048
     Dates: start: 20151109, end: 20151117
  25. BLINDED *PLACEBO [Suspect]
     Active Substance: INVESTIGATIONAL PRODUCT
     Dosage: 30 MG, QD (IN EVENING) (TOLVAPTAN)
     Route: 048
     Dates: start: 20151126, end: 20151129
  26. BLINDED *PLACEBO [Suspect]
     Active Substance: INVESTIGATIONAL PRODUCT
     Dosage: 90 MG, QD (IN MORNING) (TOLVAPTAN RUN-IN)
     Route: 048
     Dates: start: 20151201, end: 20151222
  27. BLINDED *PLACEBO [Suspect]
     Active Substance: INVESTIGATIONAL PRODUCT
     Dosage: 30 MG, QD (IN EVENING)
     Route: 048
     Dates: start: 20151130, end: 20160329
  28. BLINDED TOLVAPTAN [Suspect]
     Active Substance: TOLVAPTAN
     Dosage: 30 MG, QD (IN MORNING) (TOLVAPTAN)
     Route: 048
     Dates: start: 20151117, end: 20151121
  29. BLINDED *PLACEBO [Suspect]
     Active Substance: INVESTIGATIONAL PRODUCT
     Dosage: 90 MG, QD (IN MORNING) (TOLVAPTAN)
     Route: 048
     Dates: start: 20151130, end: 20151201
  30. BLINDED TOLVAPTAN [Suspect]
     Active Substance: TOLVAPTAN
     Dosage: 30 MG, QD (IN EVENING) (TOLVAPTAN RUN-IN)
     Route: 048
     Dates: start: 20151201, end: 20151222

REACTIONS (2)
  - Liver function test increased [Not Recovered/Not Resolved]
  - Erysipelas [Recovered/Resolved]

NARRATIVE: CASE EVENT DATE: 20160321
